FAERS Safety Report 12948933 (Version 2)
Quarter: 2016Q4

REPORT INFORMATION
  Report Type: Spontaneous
  Country: US (occurrence: US)
  Receive Date: 20161117
  Receipt Date: 20161122
  Transmission Date: 20170207
  Serious: Yes (Other)
  Sender: FDA-Public Use
  Company Number: US-AMGEN-USASP2016160062

PATIENT
  Sex: Female

DRUGS (2)
  1. PROLIA [Suspect]
     Active Substance: DENOSUMAB
     Indication: OSTEOPOROSIS POSTMENOPAUSAL
     Dosage: 60 MG/ML, Q6MO
     Route: 065
     Dates: start: 2014
  2. CALCITONIN [Concomitant]
     Active Substance: CALCITONIN

REACTIONS (5)
  - Injection site pain [Unknown]
  - Pain [Not Recovered/Not Resolved]
  - Thoracic vertebral fracture [Unknown]
  - Mobility decreased [Recovered/Resolved]
  - Activities of daily living impaired [Recovered/Resolved]

NARRATIVE: CASE EVENT DATE: 2016
